FAERS Safety Report 7092677-X (Version None)
Quarter: 2010Q4

REPORT INFORMATION
  Report Type: 
  Country: None (occurrence: None)
  Receive Date: 20101110
  Receipt Date: 20100412
  Transmission Date: 20110411
  Serious: No
  Sender: FDA-Public Use
  Company Number: US-KINGPHARMUSA00001-K201000434

PATIENT
  Sex: Male

DRUGS (2)
  1. FLECTOR [Suspect]
     Indication: BURSITIS
     Dosage: 1 PATCH, BID
     Route: 061
     Dates: start: 20100407
  2. FLECTOR [Suspect]
     Indication: LIGAMENT DISORDER

REACTIONS (1)
  - DRUG INEFFECTIVE [None]
